FAERS Safety Report 16994365 (Version 1)
Quarter: 2019Q4

REPORT INFORMATION
  Report Type: Spontaneous
  Country: US (occurrence: US)
  Receive Date: 20191105
  Receipt Date: 20191105
  Transmission Date: 20200122
  Serious: No
  Sender: FDA-Public Use
  Company Number: US-DRREDDYS-USA/USA/19/0115476

PATIENT
  Sex: Female
  Weight: 63 kg

DRUGS (1)
  1. HABITROL [Suspect]
     Active Substance: NICOTINE
     Indication: TOBACCO USER
     Route: 062
     Dates: start: 2019, end: 201903

REACTIONS (5)
  - Product quality issue [Unknown]
  - Malaise [Unknown]
  - Nausea [Unknown]
  - Product dose omission [Unknown]
  - Drug ineffective [Unknown]
